FAERS Safety Report 9700694 (Version 1)
Quarter: 2013Q4

REPORT INFORMATION
  Report Type: Spontaneous
  Country: US (occurrence: US)
  Receive Date: 20131121
  Receipt Date: 20131121
  Transmission Date: 20140711
  Serious: Yes (Other)
  Sender: FDA-Public Use
  Company Number: PHEH2013US024240

PATIENT
  Sex: Female

DRUGS (7)
  1. TEGRETOL [Suspect]
     Dosage: UNK UKN, UNK
  2. TOPAMAX [Suspect]
     Dosage: UNK UKN, UNK
  3. VIMPAT [Suspect]
     Dosage: UNK UKN, UNK
  4. DILANTIN//PHENYTOIN [Concomitant]
     Dosage: 300 MG, DAILY
  5. DILANTIN//PHENYTOIN [Concomitant]
     Dosage: 3000 MG, DAILY
  6. KEPPRA [Concomitant]
     Dosage: 3000 MG, DAILY
  7. CYMBALTA [Concomitant]
     Dosage: 60 MG, UNK

REACTIONS (9)
  - Grand mal convulsion [Unknown]
  - Petit mal epilepsy [Unknown]
  - Convulsion [Unknown]
  - Fall [Unknown]
  - Injury [Unknown]
  - Drug hypersensitivity [Unknown]
  - Renal impairment [Unknown]
  - Drug level decreased [Unknown]
  - Drug ineffective [Unknown]
